FAERS Safety Report 10103785 (Version 1)
Quarter: 2014Q2

REPORT INFORMATION
  Report Type: Spontaneous
  Country: US (occurrence: US)
  Receive Date: 20140424
  Receipt Date: 20140424
  Transmission Date: 20141212
  Serious: No
  Sender: FDA-Public Use
  Company Number: US-GILEAD-2014-0100622

PATIENT
  Sex: Female

DRUGS (1)
  1. LETAIRIS [Suspect]
     Indication: PRODUCT USED FOR UNKNOWN INDICATION
     Dosage: 5 MG, QD
     Route: 065
     Dates: start: 20140403

REACTIONS (8)
  - Fall [Unknown]
  - Back injury [Unknown]
  - Back pain [Unknown]
  - Contusion [Unknown]
  - Balance disorder [Unknown]
  - Weight increased [Unknown]
  - Dyspnoea [Unknown]
  - Dizziness [Unknown]
